FAERS Safety Report 8986436 (Version 3)
Quarter: 2013Q1

REPORT INFORMATION
  Report Type: Spontaneous
  Country: US (occurrence: None)
  Receive Date: 20121217
  Receipt Date: 20130215
  Transmission Date: 20140127
  Serious: Yes (Other)
  Sender: FDA-Public Use
  Company Number: AMAG201203151

PATIENT
  Age: 56 Year
  Sex: Female
  Weight: 68 kg

DRUGS (12)
  1. FERAHEME [Suspect]
     Indication: IRON DEFICIENCY ANAEMIA
     Route: 042
     Dates: start: 20121128, end: 20121128
  2. TRAMADOL (TRAMADOL HYDROCHLORIDE) [Concomitant]
  3. NEXIUM I.V. [Concomitant]
  4. GABAPENTIN (GABAPENTIN) [Concomitant]
  5. ZOLAZEPAM (ZOLAZEPAM) [Concomitant]
  6. SUCRALFATE (SUCRALFATE) [Concomitant]
  7. ASACOL (MESALAZINE) [Concomitant]
  8. ZOFRAN (ONDANSETROM HYDROCHLORIDE) [Concomitant]
  9. DOCOSAHEXAENOIC ACID (DOCOSAHEXAENOIC ACID) [Concomitant]
  10. DEHYDROEPIANDROSTERONE (DEHYDROEPIANDROSTERONE) [Concomitant]
  11. FISH OIL (FISH OIL) [Concomitant]
  12. PREDNISONE (PREDNISONE ACETATE) [Concomitant]

REACTIONS (12)
  - Myalgia [None]
  - Vomiting [None]
  - Diarrhoea [None]
  - Bone pain [None]
  - Back pain [None]
  - Arthralgia [None]
  - Pain in extremity [None]
  - Pain in extremity [None]
  - Crohn^s disease [None]
  - Muscle spasms [None]
  - Arthralgia [None]
  - Arthritis [None]
